FAERS Safety Report 8619950-5 (Version None)
Quarter: 2012Q3

REPORT INFORMATION
  Report Type: 
  Country: None (occurrence: None)
  Receive Date: 20120817
  Receipt Date: 20120817
  Transmission Date: 20120928
  Serious: Yes (Hospitalization, Disabling)
  Sender: FDA-Public Use
  Company Number: None

PATIENT
  Age: 83 Year
  Sex: Male
  Weight: 93.7 kg

DRUGS (3)
  1. WARFARIN SODIUM [Suspect]
     Dosage: 4MG REST OF WEEK PO
     Route: 048
  2. WARFARIN SODIUM [Suspect]
     Indication: CEREBROVASCULAR ACCIDENT PROPHYLAXIS
     Dosage: 3MG DAILY EXCEPT W+SAT PO
     Route: 048
  3. WARFARIN SODIUM [Suspect]
     Indication: ATRIAL FIBRILLATION
     Dosage: 3MG DAILY EXCEPT W+SAT PO
     Route: 048

REACTIONS (12)
  - CEREBRAL HAEMORRHAGE [None]
  - INTERNATIONAL NORMALISED RATIO DECREASED [None]
  - BLEPHAROSPASM [None]
  - BLOOD POTASSIUM DECREASED [None]
  - HEART RATE INCREASED [None]
  - ALTERED STATE OF CONSCIOUSNESS [None]
  - OXYGEN SATURATION DECREASED [None]
  - MUSCLE TWITCHING [None]
  - BLOOD PRESSURE INCREASED [None]
  - CARBON DIOXIDE INCREASED [None]
  - APHASIA [None]
  - BLOOD GLUCOSE INCREASED [None]
